FAERS Safety Report 6244550-4 (Version None)
Quarter: 2009Q2

REPORT INFORMATION
  Report Type: 
  Country: None (occurrence: None)
  Receive Date: 20090625
  Receipt Date: 20090622
  Transmission Date: 20091009
  Serious: Yes (Hospitalization)
  Sender: FDA-Public Use
  Company Number: DE-WYE-H09850809

PATIENT
  Sex: Female

DRUGS (21)
  1. RAPAMUNE [Suspect]
     Indication: PROPHYLAXIS AGAINST TRANSPLANT REJECTION
     Route: 048
     Dates: start: 20031104, end: 20031106
  2. RAPAMUNE [Suspect]
     Route: 048
     Dates: start: 20031107, end: 20040202
  3. DACLIZUMAB [Suspect]
     Indication: PROPHYLAXIS AGAINST TRANSPLANT REJECTION
     Route: 042
     Dates: start: 20031104, end: 20030101
  4. DACLIZUMAB [Suspect]
     Dosage: ON UNKNOWN DATE, PATIENT RECEIVED 150 MG ONCE EVERY 2 WEEKS WITH LAST DOSE ON 29-DEC-2003
     Route: 042
  5. MYCOPHENOLATE MOFETIL [Suspect]
     Indication: PROPHYLAXIS AGAINST TRANSPLANT REJECTION
     Route: 048
     Dates: start: 20031104, end: 20031104
  6. MYCOPHENOLATE MOFETIL [Suspect]
     Route: 048
     Dates: start: 20031105, end: 20040202
  7. MYCOPHENOLATE MOFETIL [Suspect]
     Route: 048
     Dates: start: 20040301
  8. TACROLIMUS [Concomitant]
     Indication: PROPHYLAXIS AGAINST TRANSPLANT REJECTION
     Route: 048
     Dates: start: 20040210
  9. PREDNISOLONE [Concomitant]
     Indication: PROPHYLAXIS AGAINST TRANSPLANT REJECTION
     Dosage: VARIED DOSES
     Route: 042
     Dates: start: 20031104, end: 20031106
  10. DECORTIN-H [Concomitant]
     Indication: PROPHYLAXIS AGAINST TRANSPLANT REJECTION
     Dosage: VARIED DOSES
     Route: 048
     Dates: start: 20031106
  11. HYDROCORTISONE [Concomitant]
     Indication: PROPHYLAXIS AGAINST TRANSPLANT REJECTION
     Route: 042
     Dates: start: 20040202, end: 20040210
  12. BISOPROLOL FUMARATE [Concomitant]
     Dosage: DOSE AND FREQUENCY NOT SPECIFIED
     Route: 065
     Dates: start: 20031107
  13. COTRIM DS [Concomitant]
     Dosage: DOSE AND FREQUENCY NOT SPECIFIED
     Route: 065
     Dates: start: 20031107, end: 20040107
  14. CYMEVENE [Concomitant]
     Dosage: DOSE AND FREQUENCY NOT SPECIFIED
     Route: 065
     Dates: start: 20031114, end: 20040106
  15. NORVASC [Concomitant]
     Dosage: DOSE AND FREQUENCY NOT SPECIFIED
     Route: 065
     Dates: start: 20031106
  16. ROCEPHIN [Concomitant]
     Dosage: DOSE AND FREQUENCY NOT SPECIFIED
     Route: 065
     Dates: start: 20031104, end: 20031106
  17. SORTIS ^GOEDECKE^ [Concomitant]
     Dosage: DOSE AND FREQUENCY NOT SPECIFIED
     Route: 065
     Dates: start: 20031110
  18. VALCYTE [Concomitant]
     Dosage: DOSE AND FREQUENCY NOT SPECIFIED
     Route: 065
     Dates: start: 20040106, end: 20040202
  19. AUGMENTIN [Concomitant]
     Dosage: DOSE AND FREQUENCY NOT SPECIFIED
     Route: 065
     Dates: start: 20040202, end: 20040301
  20. DIFLUCAN [Concomitant]
     Dosage: DOSE AND FREQUENCY NOT SPECIFIED
     Route: 065
     Dates: start: 20040202, end: 20040214
  21. AMPHOTERICIN B [Concomitant]

REACTIONS (2)
  - LEUKOPENIA [None]
  - STOMATITIS NECROTISING [None]
